FAERS Safety Report 9366097 (Version 1)
Quarter: 2013Q2

REPORT INFORMATION
  Report Type: Spontaneous
  Country: DE (occurrence: DE)
  Receive Date: 20130625
  Receipt Date: 20130625
  Transmission Date: 20140414
  Serious: Yes (Other)
  Sender: FDA-Public Use
  Company Number: DE-UCBSA-089727

PATIENT
  Sex: Female

DRUGS (2)
  1. VIMPAT [Suspect]
     Dates: start: 2012
  2. LEVETIRACETAM [Suspect]

REACTIONS (1)
  - Sinus tachycardia [Unknown]
